FAERS Safety Report 9374644 (Version 1)
Quarter: 2013Q2

REPORT INFORMATION
  Report Type: Spontaneous
  Country: US (occurrence: None)
  Receive Date: 20130624
  Receipt Date: 20130624
  Transmission Date: 20140414
  Serious: Yes (Disabling)
  Sender: FDA-Public Use
  Company Number: TCI2012A07266

PATIENT
  Age: 68 Year
  Sex: Female

DRUGS (7)
  1. NESINA [Suspect]
     Indication: DIABETES MELLITUS
     Dosage: (25 MG, 1 IN 1 D)
     Route: 048
     Dates: start: 20111117
  2. METGLUCO [Concomitant]
  3. UNSPECIFIED INGREDIENT [Concomitant]
  4. AMARYL [Concomitant]
  5. ADALAT CR [Concomitant]
  6. NU-LOTAN [Concomitant]
  7. CRESTOR [Concomitant]

REACTIONS (1)
  - Rheumatoid arthritis [None]
